FAERS Safety Report 6557520-3 (Version None)
Quarter: 2010Q1

REPORT INFORMATION
  Report Type: 
  Country: None (occurrence: None)
  Receive Date: 20100129
  Receipt Date: 20100121
  Transmission Date: 20100710
  Serious: Yes (Other)
  Sender: FDA-Public Use
  Company Number: US-BRISTOL-MYERS SQUIBB COMPANY-14948236

PATIENT
  Sex: Female
  Weight: 3 kg

DRUGS (16)
  1. EFAVIRENZ [Suspect]
     Indication: ANTIRETROVIRAL THERAPY
     Route: 064
  2. PARACETAMOL [Suspect]
     Route: 064
  3. RETROVIR [Suspect]
     Indication: ANTIRETROVIRAL THERAPY
     Route: 064
  4. EMTRIVA [Suspect]
     Indication: ANTIRETROVIRAL THERAPY
     Route: 064
  5. VIREAD [Suspect]
     Indication: ANTIRETROVIRAL THERAPY
     Route: 064
  6. AMPHETAMINE SULFATE [Suspect]
     Route: 064
  7. BENZODIAZEPINES [Suspect]
     Route: 064
  8. DIAZEPAM [Suspect]
     Route: 064
  9. OXAZEPAM [Suspect]
     Route: 064
  10. NITRAZEPAM [Suspect]
     Route: 064
  11. MIRTAZAPINE [Suspect]
     Route: 064
  12. ETHANOL [Suspect]
     Route: 064
  13. CODEINE [Suspect]
     Route: 064
  14. OLANZAPINE [Suspect]
     Route: 064
  15. ANTIDEPRESSANT [Suspect]
     Route: 064
  16. ALCOHOL [Suspect]
     Route: 064

REACTIONS (2)
  - CONGENITAL TRICUSPID VALVE STENOSIS [None]
  - HYPOPLASTIC RIGHT HEART SYNDROME [None]
